FAERS Safety Report 5215927-0 (Version None)
Quarter: 2007Q1

REPORT INFORMATION
  Report Type: 
  Country: None (occurrence: None)
  Receive Date: 20070123
  Receipt Date: 20070115
  Transmission Date: 20070707
  Serious: Yes (Hospitalization, Other)
  Sender: FDA-Public Use
  Company Number: CO-ELI_LILLY_AND_COMPANY-CO200701002806

PATIENT
  Age: 69 Year
  Sex: Female

DRUGS (6)
  1. FORTEO [Suspect]
     Indication: BONE DENSITY DECREASED
     Dosage: 20 UG, DAILY (1/D)
     Route: 058
     Dates: start: 20070103
  2. TRAMADOL HCL [Concomitant]
     Indication: ANALGESIC EFFECT
  3. ACETAMINOPHEN [Concomitant]
     Indication: ANALGESIC EFFECT
     Dosage: 500 MG, EVERY 4 HRS
     Route: 048
  4. AMLODIPINE [Concomitant]
     Indication: HYPERTENSION
     Dosage: 5 MG, DAILY (1/D)
     Route: 048
  5. ENALAPRIL MALEATE [Concomitant]
     Indication: HYPERTENSION
     Dosage: 20 MG, DAILY (1/D)
     Route: 048
  6. LEVOTHYROXINE SODIUM [Concomitant]
     Indication: HYPOTHYROIDISM
     Dosage: 50 UG, DAILY (1/D)
     Route: 048

REACTIONS (3)
  - GASTROINTESTINAL OBSTRUCTION [None]
  - MULTI-ORGAN FAILURE [None]
  - VOMITING [None]
